FAERS Safety Report 18023043 (Version 2)
Quarter: 2020Q3

REPORT INFORMATION
  Report Type: Spontaneous
  Country: US (occurrence: US)
  Receive Date: 20200714
  Receipt Date: 20200714
  Transmission Date: 20201103
  Serious: Yes (Other)
  Sender: FDA-Public Use
  Company Number: US-AMGEN-USA-20200507575

PATIENT
  Age: 81 Year
  Sex: Male

DRUGS (3)
  1. PIROXICAM. [Concomitant]
     Active Substance: PIROXICAM
     Indication: BACK PAIN
     Dosage: UNK
     Dates: end: 2020
  2. OTEZLA [Suspect]
     Active Substance: APREMILAST
     Indication: PSORIASIS
  3. OTEZLA [Suspect]
     Active Substance: APREMILAST
     Indication: PSORIATIC ARTHROPATHY
     Dosage: 30 MILLIGRAM, BID
     Route: 048
     Dates: start: 20200302

REACTIONS (4)
  - Condition aggravated [Unknown]
  - Haematochezia [Unknown]
  - Psoriasis [Unknown]
  - Back pain [Recovering/Resolving]

NARRATIVE: CASE EVENT DATE: 2020
